FAERS Safety Report 6150414-7 (Version None)
Quarter: 2009Q2

REPORT INFORMATION
  Report Type: 
  Country: None (occurrence: None)
  Receive Date: 20090409
  Receipt Date: 20090407
  Transmission Date: 20091009
  Serious: Yes (Other)
  Sender: FDA-Public Use
  Company Number: NL-BRISTOL-MYERS SQUIBB COMPANY-14578397

PATIENT
  Age: 77 Year
  Sex: Female

DRUGS (5)
  1. COAPROVEL FILM-COATED TABS 150/12.5 MG [Suspect]
     Indication: HYPERTENSION
     Dosage: 1 DOSAGE FORM= 150/12.5MG
     Dates: start: 20090305, end: 20090308
  2. LIPITOR [Concomitant]
     Dates: start: 20081201
  3. ACENOCOUMAROL [Concomitant]
     Dates: start: 20081201
  4. FLECAINIDE ACETATE [Concomitant]
     Dates: start: 20081201
  5. METOPROLOL SUCCINATE [Concomitant]
     Dates: start: 20050101

REACTIONS (1)
  - HALLUCINATION, VISUAL [None]
